FAERS Safety Report 18197570 (Version 1)
Quarter: 2020Q3

REPORT INFORMATION
  Report Type: Spontaneous
  Country: DE (occurrence: DE)
  Receive Date: 20200826
  Receipt Date: 20200826
  Transmission Date: 20201103
  Serious: Yes (Hospitalization, Other)
  Sender: FDA-Public Use
  Company Number: DE-DRREDDYS-GER/GER/20/0126241

PATIENT
  Age: 12 Year
  Sex: Female
  Weight: 49 kg

DRUGS (1)
  1. LAMOTRIGINE. [Suspect]
     Active Substance: LAMOTRIGINE
     Indication: EPILEPSY
     Dosage: DAILY DOSE: 4 DF DOSAGE FORM EVERY DAYS 2 SEPARATED DOSES
     Route: 048

REACTIONS (2)
  - Accidental overdose [Recovering/Resolving]
  - Dizziness [Recovering/Resolving]

NARRATIVE: CASE EVENT DATE: 20190911
